FAERS Safety Report 20963142 (Version 1)
Quarter: 2022Q2

REPORT INFORMATION
  Report Type: Spontaneous
  Country: BE (occurrence: BE)
  Receive Date: 20220615
  Receipt Date: 20220615
  Transmission Date: 20220721
  Serious: Yes (Death, Other)
  Sender: FDA-Public Use
  Company Number: BE-ASTELLAS-2022US003748

PATIENT
  Age: 35 Year
  Sex: Female

DRUGS (7)
  1. MEDROL [Suspect]
     Active Substance: METHYLPREDNISOLONE
     Dosage: UNK UNK, 2X/DAY
     Route: 048
     Dates: start: 20130327, end: 201808
  2. TACROLIMUS [Suspect]
     Active Substance: TACROLIMUS
     Indication: Lung transplant
     Dosage: UNK, 2X/DAY
     Route: 048
     Dates: start: 20130327, end: 201808
  3. CELLCEPT [Suspect]
     Active Substance: MYCOPHENOLATE MOFETIL
     Indication: Lung transplant
     Dosage: UNK
     Dates: end: 2018
  4. ZITHROMAX [Concomitant]
     Active Substance: AZITHROMYCIN DIHYDRATE
     Indication: Product used for unknown indication
     Dosage: UNK
  5. PANTOMED [DEXPANTHENOL] [Concomitant]
     Indication: Product used for unknown indication
     Dosage: UNK
  6. CALCIUM CARBONATE\CHOLECALCIFEROL [Concomitant]
     Active Substance: CALCIUM CARBONATE\CHOLECALCIFEROL
     Indication: Product used for unknown indication
     Dosage: UNK
  7. SULFAMETHOXAZOLE\TRIMETHOPRIM [Concomitant]
     Active Substance: SULFAMETHOXAZOLE\TRIMETHOPRIM
     Indication: Product used for unknown indication
     Dosage: UNK

REACTIONS (10)
  - Metastases to bone [Fatal]
  - Metastases to thyroid [Fatal]
  - Haemangioma of liver [Fatal]
  - Neoplasm progression [Fatal]
  - Metastases to central nervous system [Fatal]
  - Lung neoplasm [Fatal]
  - Metastases to lymph nodes [Fatal]
  - Metastases to kidney [Fatal]
  - Haemangioma [Fatal]
  - Metastases to ovary [Fatal]

NARRATIVE: CASE EVENT DATE: 20170401
